FAERS Safety Report 16201038 (Version 2)
Quarter: 2019Q3

REPORT INFORMATION
  Report Type: Spontaneous
  Country: US (occurrence: US)
  Receive Date: 20190416
  Receipt Date: 20190916
  Transmission Date: 20191004
  Serious: Yes (Other)
  Sender: FDA-Public Use
  Company Number: US-SA-2019SA104011

PATIENT
  Age: 53 Year
  Sex: Female

DRUGS (2)
  1. TOUJEO [Suspect]
     Active Substance: INSULIN GLARGINE
     Indication: TYPE 2 DIABETES MELLITUS
     Dosage: 75 U, QD
     Route: 058
  2. TOUJEO [Suspect]
     Active Substance: INSULIN GLARGINE
     Dosage: 75 UNK
     Route: 058
     Dates: start: 201811

REACTIONS (7)
  - Brain injury [Unknown]
  - Encephalitis [Unknown]
  - Eye disorder [Unknown]
  - Wrong technique in device usage process [Unknown]
  - Condition aggravated [Unknown]
  - Memory impairment [Unknown]
  - Herpes zoster [Unknown]
